FAERS Safety Report 21238132 (Version 1)
Quarter: 2022Q3

REPORT INFORMATION
  Report Type: Spontaneous
  Country: AU (occurrence: AU)
  Receive Date: 20220822
  Receipt Date: 20220822
  Transmission Date: 20221026
  Serious: Yes (Other)
  Sender: FDA-Public Use
  Company Number: AU-drreddys-SPO/AUS/22/0153435

PATIENT
  Age: 71 Year
  Sex: Male

DRUGS (3)
  1. POSACONAZOLE [Suspect]
     Active Substance: POSACONAZOLE
     Indication: Product used for unknown indication
  2. AZACITIDINE [Suspect]
     Active Substance: AZACITIDINE
     Indication: Product used for unknown indication
  3. CYTARABINE [Suspect]
     Active Substance: CYTARABINE
     Indication: Product used for unknown indication

REACTIONS (3)
  - Pneumonia fungal [Unknown]
  - Pulmonary sepsis [Unknown]
  - Drug ineffective [Unknown]
